FAERS Safety Report 12558320 (Version 1)
Quarter: 2016Q3

REPORT INFORMATION
  Report Type: Spontaneous
  Country: US (occurrence: US)
  Receive Date: 20160714
  Receipt Date: 20160714
  Transmission Date: 20161109
  Serious: No
  Sender: FDA-Public Use
  Company Number: US-ALLERGAN-1648677

PATIENT
  Sex: Male

DRUGS (1)
  1. TRIPTORELIN PAMOATE 3.75MG SUS [Suspect]
     Active Substance: TRIPTORELIN PAMOATE
     Indication: PRODUCT USED FOR UNKNOWN INDICATION
     Dosage: 3.75 MG, UNKNOWN
     Route: 050

REACTIONS (2)
  - Hot flush [Unknown]
  - Erectile dysfunction [Unknown]
